FAERS Safety Report 4300393-X (Version None)
Quarter: 2004Q1

REPORT INFORMATION
  Report Type: 
  Country: None (occurrence: None)
  Receive Date: 20040220
  Receipt Date: 20040204
  Transmission Date: 20041129
  Serious: Yes (Hospitalization)
  Sender: FDA-Public Use
  Company Number: FR-GLAXOSMITHKLINE-B0323664A

PATIENT
  Sex: Male

DRUGS (3)
  1. RETROVIR [Suspect]
     Indication: ANTIVIRAL PROPHYLAXIS
     Dosage: 8MGK PER DAY
     Route: 065
     Dates: start: 20031014, end: 20031114
  2. COMBIVIR [Suspect]
     Indication: ANTIVIRAL PROPHYLAXIS
  3. NELFINAVIR [Concomitant]
     Indication: ANTIVIRAL PROPHYLAXIS

REACTIONS (5)
  - ANAEMIA [None]
  - ANAEMIA NEONATAL [None]
  - DRUG EXPOSURE DURING PREGNANCY [None]
  - GLUCOSE-6-PHOSPHATE DEHYDROGENASE DEFICIENCY [None]
  - NEONATAL DISORDER [None]
